FAERS Safety Report 16030077 (Version 1)
Quarter: 2019Q2

REPORT INFORMATION
  Report Type: Spontaneous
  Country: US (occurrence: US)
  Receive Date: 20190304
  Receipt Date: 20190304
  Transmission Date: 20190711
  Serious: Yes (Hospitalization)
  Sender: FDA-Public Use
  Company Number: None

PATIENT
  Age: 48 Year
  Sex: Male

DRUGS (1)
  1. FINASTERIDE TABLETS [Suspect]
     Active Substance: FINASTERIDE
     Route: 048
     Dates: start: 20190228, end: 20190302

REACTIONS (2)
  - Urticaria [None]
  - Insomnia [None]

NARRATIVE: CASE EVENT DATE: 20190302
